FAERS Safety Report 21310773 (Version 1)
Quarter: 2022Q3

REPORT INFORMATION
  Report Type: Spontaneous
  Country: CN (occurrence: None)
  Receive Date: 20220909
  Receipt Date: 20220909
  Transmission Date: 20221026
  Serious: Yes (Other)
  Sender: FDA-Public Use
  Company Number: CN-ROCHE-3173920

PATIENT
  Age: 49 Year
  Sex: Female
  Weight: 53 kg

DRUGS (7)
  1. CARBOPLATIN [Suspect]
     Active Substance: CARBOPLATIN
     Indication: Breast cancer
     Route: 041
     Dates: start: 20220810
  2. DOCETAXEL [Suspect]
     Active Substance: DOCETAXEL
     Indication: Breast cancer
     Route: 041
     Dates: start: 20220810
  3. PERJETA [Suspect]
     Active Substance: PERTUZUMAB
     Indication: Breast cancer
     Route: 041
     Dates: start: 20220810
  4. TRASTUZUMAB [Suspect]
     Active Substance: TRASTUZUMAB
     Indication: Breast cancer
     Route: 041
     Dates: start: 20220810
  5. SODIUM CHLORIDE [Concomitant]
     Active Substance: SODIUM CHLORIDE
     Dosage: INDICATION: SOLVENT
     Route: 041
     Dates: start: 20220810
  6. DEXTROSE [Concomitant]
     Active Substance: DEXTROSE
     Dosage: INDICATION :SOLVENT
     Route: 041
     Dates: start: 20220810
  7. HUMAN GRANULOCYTE STIMULATING FACTOR (UNK INGREDIENTS) [Concomitant]
     Route: 058
     Dates: start: 20220819

REACTIONS (1)
  - Myelosuppression [Recovering/Resolving]

NARRATIVE: CASE EVENT DATE: 20220819
